FAERS Safety Report 6566366-1 (Version None)
Quarter: 2010Q1

REPORT INFORMATION
  Report Type: 
  Country: None (occurrence: None)
  Receive Date: 20100202
  Receipt Date: 20100122
  Transmission Date: 20100710
  Serious: Yes (Hospitalization)
  Sender: FDA-Public Use
  Company Number: US-ELI_LILLY_AND_COMPANY-US200912006215

PATIENT
  Sex: Female

DRUGS (4)
  1. FORTEO [Suspect]
     Indication: OSTEOPOROSIS
     Dosage: 20 UG, DAILY (1/D)
     Dates: start: 20090101
  2. CARDIAC THERAPY [Concomitant]
  3. VITAMIN D [Concomitant]
     Dosage: 1000 UNK, UNK
  4. MULTI-VITAMIN [Concomitant]

REACTIONS (3)
  - DIZZINESS [None]
  - FALL [None]
  - SKIN LACERATION [None]
